FAERS Safety Report 10392425 (Version 2)
Quarter: 2014Q1

REPORT INFORMATION
  Report Type: Spontaneous
  Country: US (occurrence: None)
  Receive Date: 20120817
  Receipt Date: 20130815
  Transmission Date: 20141002
  Serious: Yes (Hospitalization, Other)
  Sender: FDA-Public Use
  Company Number: ADR-2012-00655

PATIENT
  Age: 16 Year
  Sex: Male

DRUGS (2)
  1. LIORESAL INTRATHECAL (BACLOFEN INJECTION) 500 MCG/ML [Suspect]
     Indication: MUSCLE SPASTICITY
  2. LIORESAL INTRATHECAL (BACLOFEN INJECTION) 500 MCG/ML [Suspect]
     Indication: CEREBRAL PALSY

REACTIONS (7)
  - Drug withdrawal syndrome [None]
  - Hyperhidrosis [None]
  - Hypertonia [None]
  - Pruritus [None]
  - Nausea [None]
  - Muscle spasms [None]
  - Tremor [None]
